FAERS Safety Report 10498723 (Version 1)
Quarter: 2014Q4

REPORT INFORMATION
  Report Type: Spontaneous
  Country: DE (occurrence: DE)
  Receive Date: 20141006
  Receipt Date: 20141006
  Transmission Date: 20150528
  Serious: Yes (Hospitalization)
  Sender: FDA-Public Use
  Company Number: DE-PFIZER INC-2014270043

PATIENT
  Age: 42 Year
  Sex: Male

DRUGS (1)
  1. LYRICA [Suspect]
     Active Substance: PREGABALIN
     Indication: DEPENDENCE
     Dosage: 75 MG, 3X/DAY

REACTIONS (9)
  - Nausea [Unknown]
  - Weight decreased [Unknown]
  - Panic disorder [Unknown]
  - Blood pressure fluctuation [Unknown]
  - Visual impairment [Unknown]
  - Tremor [Unknown]
  - Abdominal discomfort [Unknown]
  - Decreased appetite [Unknown]
  - Restlessness [Unknown]
